FAERS Safety Report 16844219 (Version 1)
Quarter: 2019Q3

REPORT INFORMATION
  Report Type: Spontaneous
  Country: US (occurrence: US)
  Receive Date: 20190924
  Receipt Date: 20190924
  Transmission Date: 20191005
  Serious: Yes (Hospitalization, Other)
  Sender: FDA-Public Use
  Company Number: US-PFIZER INC-2019407830

PATIENT
  Age: 50 Year
  Sex: Female
  Weight: 63.5 kg

DRUGS (1)
  1. LYRICA [Suspect]
     Active Substance: PREGABALIN
     Indication: RESTLESS LEGS SYNDROME
     Dosage: 75 MG, 2X/DAY
     Route: 048

REACTIONS (4)
  - Haemorrhage [Unknown]
  - Off label use [Unknown]
  - Product use in unapproved indication [Unknown]
  - Crohn^s disease [Recovering/Resolving]
